FAERS Safety Report 5693816-5 (Version None)
Quarter: 2008Q2

REPORT INFORMATION
  Report Type: 
  Country: None (occurrence: None)
  Receive Date: 20080403
  Receipt Date: 20080327
  Transmission Date: 20081010
  Serious: Yes (Death)
  Sender: FDA-Public Use
  Company Number: ES-SANOFI-SYNTHELABO-A01200800528

PATIENT
  Age: 68 Year
  Sex: Male

DRUGS (9)
  1. TORSEMIDE [Suspect]
     Dosage: UNK
  2. GLYBURIDE [Suspect]
     Dosage: UNK
  3. DILTIAZEM [Suspect]
     Dosage: UNK
  4. RAMIPRIL [Suspect]
     Dosage: UNK
  5. ASPIRIN [Suspect]
     Dosage: UNK
  6. NITROGLYCERIN [Suspect]
     Dosage: UNK
  7. METFORMIN HCL [Suspect]
     Indication: DIABETES MELLITUS
     Route: 048
  8. CLOPIDOGREL [Suspect]
     Dosage: UNK
  9. TRIMETAZIDINE [Suspect]
     Dosage: UNK

REACTIONS (1)
  - METABOLIC ACIDOSIS [None]
